FAERS Safety Report 9772334 (Version 1)
Quarter: 2013Q4

REPORT INFORMATION
  Report Type: Spontaneous
  Country: US (occurrence: None)
  Receive Date: 20131218
  Receipt Date: 20131218
  Transmission Date: 20140711
  Serious: Yes (Other)
  Sender: FDA-Public Use
  Company Number: None

PATIENT
  Age: 63 None
  Sex: Male

DRUGS (4)
  1. AFINITOR [Suspect]
     Route: 048
     Dates: start: 20131023, end: 201312
  2. TIKOSYN [Suspect]
  3. AMLODIPINE [Concomitant]
  4. METOPROLOL [Concomitant]

REACTIONS (1)
  - Disease progression [None]
